FAERS Safety Report 16034865 (Version 1)
Quarter: 2019Q1

REPORT INFORMATION
  Report Type: Spontaneous
  Country: US (occurrence: US)
  Receive Date: 20190205
  Receipt Date: 20190205
  Transmission Date: 20190418
  Serious: Yes (Hospitalization)
  Sender: FDA-Public Use
  Company Number: None

PATIENT
  Age: 24 Month
  Sex: Female

DRUGS (1)
  1. AFINITOR DISPERZ [Suspect]
     Active Substance: EVEROLIMUS
     Route: 048
     Dates: start: 201812

REACTIONS (3)
  - Condition aggravated [None]
  - Drug ineffective [None]
  - Seizure [None]

NARRATIVE: CASE EVENT DATE: 20190201
